FAERS Safety Report 21297207 (Version 1)
Quarter: 2022Q3

REPORT INFORMATION
  Report Type: Spontaneous
  Country: US (occurrence: None)
  Receive Date: 20220902
  Receipt Date: 20220902
  Transmission Date: 20221026
  Serious: Yes (Life-Threatening)
  Sender: FDA-Public Use
  Company Number: None

PATIENT
  Age: 61 Year
  Sex: Male
  Weight: 80 kg

DRUGS (2)
  1. NIRMATRELVIR\RITONAVIR [Suspect]
     Active Substance: NIRMATRELVIR\RITONAVIR
     Indication: COVID-19 treatment
     Dosage: OTHER QUANTITY : 300/100 MG;?FREQUENCY : TWICE A DAY;?
     Route: 048
     Dates: start: 20220820, end: 20220822
  2. LURASIDONE HYDROCHLORIDE [Suspect]
     Active Substance: LURASIDONE HYDROCHLORIDE

REACTIONS (6)
  - Therapy interrupted [None]
  - Suicidal ideation [None]
  - Treatment noncompliance [None]
  - Substance use [None]
  - Akathisia [None]
  - Stress [None]

NARRATIVE: CASE EVENT DATE: 20220822
